FAERS Safety Report 7554057-X (Version None)
Quarter: 2011Q2

REPORT INFORMATION
  Report Type: 
  Country: None (occurrence: None)
  Receive Date: 20110617
  Receipt Date: 20110615
  Transmission Date: 20111010
  Serious: No
  Sender: FDA-Public Use
  Company Number: IT-SANOFI-AVENTIS-2011SA037937

PATIENT
  Sex: Female

DRUGS (1)
  1. ARAVA [Suspect]

REACTIONS (1)
  - DRUG EXPOSURE DURING PREGNANCY [None]
